FAERS Safety Report 5301716-5 (Version None)
Quarter: 2007Q2

REPORT INFORMATION
  Report Type: 
  Country: None (occurrence: None)
  Receive Date: 20070419
  Receipt Date: 20070330
  Transmission Date: 20071010
  Serious: No
  Sender: FDA-Public Use
  Company Number: 2006UW10922

PATIENT
  Age: 36 Year
  Sex: Female
  Weight: 84.1 kg

DRUGS (6)
  1. SEROQUEL [Suspect]
     Indication: BIPOLAR DISORDER
     Route: 048
     Dates: start: 20020101, end: 20050101
  2. SEROQUEL [Suspect]
     Indication: SCHIZOPHRENIA
     Route: 048
     Dates: start: 20020101, end: 20050101
  3. SEROQUEL [Suspect]
     Indication: SLEEP DISORDER
     Route: 048
     Dates: start: 20020101, end: 20050101
  4. ZYPREXA [Suspect]
  5. ABILIFY [Concomitant]
     Dates: start: 20060401
  6. RISPERDAL [Concomitant]

REACTIONS (1)
  - DIABETES MELLITUS [None]
